FAERS Safety Report 9193645 (Version 1)
Quarter: 2013Q1

REPORT INFORMATION
  Report Type: Spontaneous
  Country: US (occurrence: None)
  Receive Date: 20120703
  Receipt Date: 20120703
  Transmission Date: 20140127
  Serious: No
  Sender: FDA-Public Use
  Company Number: PHEH2012US007076

PATIENT
  Age: 62 Year
  Sex: Female
  Weight: 68.5 kg

DRUGS (1)
  1. GILENYA [Suspect]
     Indication: MULTIPLE SCLEROSIS
     Route: 048
     Dates: start: 20120215, end: 20120223

REACTIONS (5)
  - Pain in jaw [None]
  - Oropharyngeal pain [None]
  - Malaise [None]
  - Cough [None]
  - Infection [None]
